FAERS Safety Report 5054130-4 (Version None)
Quarter: 2006Q3

REPORT INFORMATION
  Report Type: 
  Country: None (occurrence: None)
  Receive Date: 20060713
  Receipt Date: 20060628
  Transmission Date: 20061208
  Serious: Yes (Life-Threatening)
  Sender: FDA-Public Use
  Company Number: 2006JP001385

PATIENT
  Age: 51 Year
  Sex: Female

DRUGS (13)
  1. PROGRAF [Suspect]
     Indication: LIVER TRANSPLANT
     Dosage: 3 MG, CONTINUOUS, IV DRIP
     Route: 041
     Dates: start: 20060304, end: 20060331
  2. PROGRAF [Suspect]
     Indication: LIVER TRANSPLANT
     Dosage: BID, ORAL
     Route: 048
     Dates: start: 20060401, end: 20060516
  3. SOL MEDROL (METHYLPREDNISOLONE, SUCCINATE SODIUM) INJECTION [Concomitant]
  4. MEDROL [Concomitant]
  5. TAKEPRON (LANSOPRAZOLE) PER ORAL NOS [Concomitant]
  6. LASIX (FUROSEMIDE) PER ORAL NOS [Concomitant]
  7. SULPERASON (CEFOPERAZONE, SULBACTAM) INJECTION [Concomitant]
  8. STRONG NEO-MINOPHAGEN C (AMINOACETIC ACID, GLYCYRRHIZIC ACID, CYSTEINE [Concomitant]
  9. VENOGLOBULIN [Concomitant]
  10. UNASYN S (AMPICILIN SODIUM, SULBACTAM SODIUM) INJECTION [Concomitant]
  11. PEG-INTRON [Concomitant]
  12. PROSTANDIN (ALPROSTADIL) INJECTION [Concomitant]
  13. REBETOL (RIBAVIRIN) TABLET [Concomitant]

REACTIONS (11)
  - APHASIA [None]
  - CEREBRAL ARTERITIS [None]
  - CEREBRAL HAEMORRHAGE [None]
  - CEREBRAL INFARCTION [None]
  - CEREBROVASCULAR DISORDER [None]
  - CEREBROVASCULAR STENOSIS [None]
  - COMMUNICATION DISORDER [None]
  - CONVULSION [None]
  - DEPRESSED LEVEL OF CONSCIOUSNESS [None]
  - SPEECH DISORDER [None]
  - VASCULITIS CEREBRAL [None]
